FAERS Safety Report 24064970 (Version 1)
Quarter: 2024Q3

REPORT INFORMATION
  Report Type: Spontaneous
  Country: FR (occurrence: FR)
  Receive Date: 20240709
  Receipt Date: 20240709
  Transmission Date: 20241017
  Serious: Yes (Death)
  Sender: CHEPLAPHARM
  Company Number: None

PATIENT
  Sex: Male

DRUGS (10)
  1. OLANZAPINE [Suspect]
     Active Substance: OLANZAPINE
  2. CANNABIS SATIVA SUBSP. INDICA TOP [Suspect]
     Active Substance: CANNABIS SATIVA SUBSP. INDICA TOP
  3. CYAMEMAZINE [Suspect]
     Active Substance: CYAMEMAZINE
  4. LOXAPINE SUCCINATE [Suspect]
     Active Substance: LOXAPINE SUCCINATE
  5. ETHYLMORPHINE HYDROCHLORIDE [Suspect]
     Active Substance: ETHYLMORPHINE HYDROCHLORIDE
  6. DIAZEPAM [Suspect]
     Active Substance: DIAZEPAM
  7. NORDAZEPAM [Suspect]
     Active Substance: NORDAZEPAM
  8. TEMAZEPAM [Suspect]
     Active Substance: TEMAZEPAM
  9. OXAZEPAM [Suspect]
     Active Substance: OXAZEPAM
  10. ZOPICLONE [Suspect]
     Active Substance: ZOPICLONE

REACTIONS (1)
  - Drug abuse [Fatal]
